FAERS Safety Report 6191195-0 (Version None)
Quarter: 2009Q2

REPORT INFORMATION
  Report Type: 
  Country: None (occurrence: None)
  Receive Date: 20090513
  Receipt Date: 20090513
  Transmission Date: 20091009
  Serious: Yes (Other)
  Sender: FDA-Public Use
  Company Number: None

PATIENT
  Age: 28 Year
  Sex: Male
  Weight: 90.7194 kg

DRUGS (3)
  1. RISPERIDONE [Suspect]
     Indication: LACERATION
     Dosage: 4 MG Q HS PO X 1 DOSE
     Route: 048
     Dates: start: 20090428
  2. RISPERIDONE [Suspect]
     Indication: SCHIZOPHRENIA
     Dosage: 4 MG Q HS PO X 1 DOSE
     Route: 048
     Dates: start: 20090428
  3. COGENTIN [Concomitant]

REACTIONS (1)
  - TACHYCARDIA [None]
